FAERS Safety Report 6636527-1 (Version None)
Quarter: 2010Q1

REPORT INFORMATION
  Report Type: 
  Country: None (occurrence: None)
  Receive Date: 20100226
  Receipt Date: 20091105
  Transmission Date: 20100710
  Serious: Yes (Other)
  Sender: FDA-Public Use
  Company Number: 293959

PATIENT
  Age: 18 Year
  Sex: Male
  Weight: 122 kg

DRUGS (2)
  1. NUTROPIN [Suspect]
     Indication: GROWTH HORMONE DEFICIENCY
     Dosage: SUBCUTANEOUS
     Route: 058
     Dates: start: 20090226, end: 20090801
  2. INSULIN (INSULIN) [Concomitant]

REACTIONS (1)
  - HYPERGLYCAEMIA [None]
